FAERS Safety Report 7832343-3 (Version None)
Quarter: 2011Q4

REPORT INFORMATION
  Report Type: 
  Country: None (occurrence: None)
  Receive Date: 20111022
  Receipt Date: 20111005
  Transmission Date: 20120403
  Serious: Yes (Other)
  Sender: FDA-Public Use
  Company Number: US-BAYER-2011-055294

PATIENT
  Age: 24 Year
  Sex: Female
  Weight: 81.179 kg

DRUGS (6)
  1. NORFLEX [Concomitant]
  2. FLEXERIL [Concomitant]
  3. YAZ [Suspect]
     Indication: MENSTRUATION IRREGULAR
     Dosage: UNK
     Dates: start: 20090601
  4. TORADOL [Concomitant]
  5. NAPROXEN [Concomitant]
  6. BENADRYL [Concomitant]

REACTIONS (3)
  - PULMONARY EMBOLISM [None]
  - INJURY [None]
  - PAIN [None]
